FAERS Safety Report 15516346 (Version 1)
Quarter: 2018Q4

REPORT INFORMATION
  Report Type: Other
  Country: FR (occurrence: FR)
  Receive Date: 20181017
  Receipt Date: 20181017
  Transmission Date: 20190205
  Serious: Yes (Other)
  Sender: FDA-Public Use
  Company Number: FR-CELLTRION INC.-2018FR023107

PATIENT

DRUGS (2)
  1. INFLIXIMAB (UNKNOWN) [Suspect]
     Active Substance: INFLIXIMAB
     Indication: ANKYLOSING SPONDYLITIS
     Dosage: 660 MG, 6 WEEKS, 48 PERFUSIONS
     Route: 041
     Dates: start: 201606, end: 201606
  2. INFLIXIMAB (UNKNOWN) [Suspect]
     Active Substance: INFLIXIMAB
     Dosage: 660 MG, 6 WEEKS, 48 PERFUSIONS
     Route: 041
     Dates: start: 20170911, end: 20170911

REACTIONS (2)
  - Incorrect dose administered [Unknown]
  - Oligoasthenoteratozoospermia [Not Recovered/Not Resolved]

NARRATIVE: CASE EVENT DATE: 20170825
